FAERS Safety Report 5237787-4 (Version None)
Quarter: 2007Q1

REPORT INFORMATION
  Report Type: 
  Country: None (occurrence: None)
  Receive Date: 20070214
  Receipt Date: 20070214
  Transmission Date: 20070707
  Serious: Yes (Other)
  Sender: FDA-Public Use
  Company Number: CA-GLAXOSMITHKLINE-A0639429A

PATIENT
  Age: 56 Year
  Sex: Female

DRUGS (1)
  1. TUMS E-X TABLETS, ASSORTED BERRIES [Suspect]
     Indication: DRUG USE FOR UNKNOWN INDICATION
     Dosage: 1TAB SINGLE DOSE
     Route: 048
     Dates: start: 20070211, end: 20070211

REACTIONS (3)
  - HYPERSENSITIVITY [None]
  - SWOLLEN TONGUE [None]
  - THROAT TIGHTNESS [None]
